FAERS Safety Report 26133823 (Version 1)
Quarter: 2025Q4

REPORT INFORMATION
  Report Type: Spontaneous
  Country: US (occurrence: US)
  Receive Date: 20251209
  Receipt Date: 20251209
  Transmission Date: 20260117
  Serious: Yes (Other)
  Sender: SANOFI AVENTIS
  Company Number: US-SA-2025SA365399

PATIENT
  Age: 49 Year
  Sex: Female

DRUGS (8)
  1. DUPIXENT [Suspect]
     Active Substance: DUPILUMAB
     Indication: Asthma
     Dosage: 300 MG, QW
     Route: 058
     Dates: start: 202209
  2. DUPIXENT [Suspect]
     Active Substance: DUPILUMAB
     Indication: Eosinophilic oesophagitis
  3. DUPIXENT [Suspect]
     Active Substance: DUPILUMAB
     Indication: Rheumatoid arthritis
  4. DUPIXENT [Suspect]
     Active Substance: DUPILUMAB
     Indication: Psoriatic arthropathy
  5. ACTEMRA ACTPEN [Concomitant]
     Active Substance: TOCILIZUMAB
     Dosage: UNK
  6. ORENCIA [Concomitant]
     Active Substance: ABATACEPT
     Indication: Psoriatic arthropathy
     Dosage: UNK
  7. ORENCIA [Concomitant]
     Active Substance: ABATACEPT
     Indication: Rheumatoid arthritis
  8. ORENCIA [Concomitant]
     Active Substance: ABATACEPT
     Indication: Granulomatosis with polyangiitis

REACTIONS (6)
  - Rheumatoid arthritis [Unknown]
  - Bone pain [Unknown]
  - Arthralgia [Unknown]
  - Oral candidiasis [Unknown]
  - Urinary tract infection [Unknown]
  - Product use in unapproved indication [Unknown]

NARRATIVE: CASE EVENT DATE: 20251203
